FAERS Safety Report 18327093 (Version 2)
Quarter: 2020Q4

REPORT INFORMATION
  Report Type: Spontaneous
  Country: JP (occurrence: JP)
  Receive Date: 20200929
  Receipt Date: 20201013
  Transmission Date: 20210113
  Serious: Yes (Other)
  Sender: FDA-Public Use
  Company Number: JP-JNJFOC-20200935750

PATIENT
  Age: 4 Decade
  Sex: Male

DRUGS (6)
  1. ABACAVIR SULFATE W/LAMIVUDINE [Concomitant]
     Active Substance: ABACAVIR\LAMIVUDINE
     Dosage: DOSE UNKNOWN
     Route: 048
     Dates: start: 2012
  2. PREZISTA [Suspect]
     Active Substance: DARUNAVIR ETHANOLATE
     Indication: PRODUCT USED FOR UNKNOWN INDICATION
     Dosage: DOSE UNKNOWN
     Route: 048
     Dates: start: 2009, end: 2011
  3. RITONAVIR. [Concomitant]
     Active Substance: RITONAVIR
     Dosage: DOSE UNKNOWN
     Route: 048
     Dates: start: 2009, end: 2011
  4. PREZISTA [Suspect]
     Active Substance: DARUNAVIR ETHANOLATE
     Dosage: DOSE UNKNOWN
     Route: 048
     Dates: start: 2012
  5. RITONAVIR. [Concomitant]
     Active Substance: RITONAVIR
     Dosage: DOSE UNKNOWN
     Route: 048
     Dates: start: 2012
  6. EMTRICITABINE W/TENOFOVIR DISOPROXIL FUMARATE [Concomitant]
     Active Substance: EMTRICITABINE\TENOFOVIR DISOPROXIL
     Dosage: DOSE UNKNOWN
     Route: 048
     Dates: start: 2009, end: 2011

REACTIONS (1)
  - Pneumocystis jirovecii pneumonia [Unknown]

NARRATIVE: CASE EVENT DATE: 2013
